FAERS Safety Report 8012998-3 (Version None)
Quarter: 2011Q4

REPORT INFORMATION
  Report Type: 
  Country: None (occurrence: None)
  Receive Date: 20111229
  Receipt Date: 20111216
  Transmission Date: 20120403
  Serious: Yes (Death)
  Sender: FDA-Public Use
  Company Number: US-PFIZER INC-2011311328

PATIENT
  Age: 59 Year
  Sex: Female

DRUGS (9)
  1. ENALAPRIL [Suspect]
     Dosage: UNK
     Route: 048
  2. ALPRAZOLAM [Suspect]
     Dosage: UNK
     Route: 048
  3. CARBAMAZEPINE [Suspect]
     Dosage: UNK
     Route: 048
  4. OMEPRAZOLE [Suspect]
     Dosage: UNK
     Route: 048
  5. ACETAMINOPHEN AND HYDROCODONE BITARTRATE [Suspect]
     Dosage: UNK
     Route: 048
  6. ATENOLOL [Suspect]
     Dosage: UNK
     Route: 048
  7. PREDNISONE [Suspect]
     Dosage: UNK
     Route: 048
  8. BUSPIRONE [Suspect]
     Dosage: UNK
     Route: 048
  9. HYDROXYCHLOROQUINE [Suspect]
     Dosage: UNK
     Route: 048

REACTIONS (3)
  - COMPLETED SUICIDE [None]
  - INTENTIONAL DRUG MISUSE [None]
  - TOXICITY TO VARIOUS AGENTS [None]
